FAERS Safety Report 6709925-5 (Version None)
Quarter: 2010Q2

REPORT INFORMATION
  Report Type: 
  Country: None (occurrence: None)
  Receive Date: 20100504
  Receipt Date: 20100417
  Transmission Date: 20101027
  Serious: Yes (Death)
  Sender: FDA-Public Use
  Company Number: GB-TEVA-232693ISR

PATIENT
  Sex: Male

DRUGS (16)
  1. PREDNISOLONE [Suspect]
     Indication: PROSTATE CANCER METASTATIC
     Route: 048
     Dates: start: 20081020
  2. ABIRATERONE ACETATE [Suspect]
  3. PLACEBO [Suspect]
     Indication: PROSTATE CANCER METASTATIC
     Route: 048
     Dates: start: 20081020
  4. PHOSPHORIC ACID SODIUM [Concomitant]
     Route: 048
     Dates: start: 20090116
  5. LEUPROLIDE ACETATE [Concomitant]
     Indication: PROSTATE CANCER
     Route: 058
     Dates: start: 20081020
  6. MORPHINE SULFATE [Concomitant]
     Indication: BREAKTHROUGH PAIN
     Route: 048
     Dates: start: 20090506
  7. IRBESARTAN [Concomitant]
     Indication: HYPERTENSION
     Route: 048
     Dates: start: 20090902
  8. PHENOXYMETHYLPENICILLIN [Concomitant]
     Indication: INFECTION PROPHYLAXIS
     Route: 048
  9. MOVICOL [Concomitant]
     Indication: CONSTIPATION PROPHYLAXIS
     Route: 048
     Dates: start: 20090128
  10. MORPHINE [Concomitant]
     Indication: CANCER PAIN
     Route: 048
     Dates: start: 20090506
  11. QUININE SULFATE [Concomitant]
     Indication: MUSCLE SPASMS
     Route: 048
     Dates: start: 20090408
  12. QUININE SULFATE [Concomitant]
     Route: 048
  13. CALCIUM CARBONATE W/CALCIUM GLUCONATE [Concomitant]
     Indication: PROPHYLAXIS
     Route: 048
  14. BISACODYL [Concomitant]
     Indication: BOWEL MOVEMENT IRREGULARITY
     Route: 054
     Dates: start: 20081007
  15. LANSOPRAZOLE [Concomitant]
     Indication: PROPHYLAXIS AGAINST GASTROINTESTINAL ULCER
     Route: 048
     Dates: start: 20081001
  16. LANSOPRAZOLE [Concomitant]
     Route: 048
     Dates: start: 20090211

REACTIONS (1)
  - PROSTATE CANCER [None]
